FAERS Safety Report 7328673-4 (Version None)
Quarter: 2011Q1

REPORT INFORMATION
  Report Type: 
  Country: None (occurrence: None)
  Receive Date: 20110303
  Receipt Date: 20110223
  Transmission Date: 20110831
  Serious: Yes (Other)
  Sender: FDA-Public Use
  Company Number: CA-JNJFOC-20110208537

PATIENT
  Sex: Male
  Weight: 90 kg

DRUGS (1)
  1. REMICADE [Suspect]
     Indication: ANKYLOSING SPONDYLITIS
     Route: 042

REACTIONS (6)
  - COUGH [None]
  - HOT FLUSH [None]
  - PARAESTHESIA [None]
  - INFUSION RELATED REACTION [None]
  - CHEST PAIN [None]
  - ERYTHEMA [None]
